FAERS Safety Report 7918665 (Version 4)
Quarter: 2013Q3

REPORT INFORMATION
  Report Type: Report from Study
  Country: DE (occurrence: DE)
  Receive Date: 20110428
  Receipt Date: 20130723
  Transmission Date: 20140515
  Serious: Yes (Hospitalization, Other)
  Sender: FDA-Public Use
  Company Number: DE-JNJFOC-20110400482

PATIENT
  Age: 54 Year
  Sex: Male
  Weight: 59 kg

DRUGS (4)
  1. SIMPONI [Suspect]
     Indication: ANKYLOSING SPONDYLITIS
     Route: 058
     Dates: start: 20100923, end: 20110217
  2. CELEBREX [Concomitant]
     Indication: ANKYLOSING SPONDYLITIS
     Dates: start: 20051104
  3. ACTONEL [Concomitant]
     Indication: OSTEOPOROSIS
  4. SIMVASTATIN [Concomitant]
     Indication: LIPIDS ABNORMAL

REACTIONS (3)
  - Pneumonia [Recovering/Resolving]
  - Pyrexia [Recovering/Resolving]
  - Infectious pleural effusion [Recovered/Resolved]
